FAERS Safety Report 7442879-5 (Version None)
Quarter: 2011Q2

REPORT INFORMATION
  Report Type: 
  Country: None (occurrence: None)
  Receive Date: 20110428
  Receipt Date: 20110419
  Transmission Date: 20111010
  Serious: Yes (Other)
  Sender: FDA-Public Use
  Company Number: US-ASTRAZENECA-2011SE22577

PATIENT

DRUGS (3)
  1. CRESTOR [Suspect]
     Route: 048
  2. NEXIUM [Suspect]
     Route: 048
  3. TOPROL-XL [Suspect]
     Route: 048

REACTIONS (11)
  - OSTEOARTHRITIS [None]
  - HYPERTENSION [None]
  - HIATUS HERNIA [None]
  - FIBROMYALGIA [None]
  - EXOSTOSIS [None]
  - DISABILITY [None]
  - SHOULDER OPERATION [None]
  - DIABETES MELLITUS [None]
  - GASTROOESOPHAGEAL REFLUX DISEASE [None]
  - IRRITABLE BOWEL SYNDROME [None]
  - PAIN [None]
